FAERS Safety Report 7600933-9 (Version None)
Quarter: 2011Q3

REPORT INFORMATION
  Report Type: 
  Country: None (occurrence: None)
  Receive Date: 20110701
  Receipt Date: 20100611
  Transmission Date: 20111222
  Serious: Yes (Hospitalization)
  Sender: FDA-Public Use
  Company Number: GXBR2010US01147

PATIENT
  Age: 13 Year
  Sex: Male
  Weight: 55.8 kg

DRUGS (4)
  1. VENTOLIN [Concomitant]
  2. LUPRON [Concomitant]
  3. OMNITROPE [Suspect]
     Indication: GROWTH HORMONE DEFICIENCY
     Dates: start: 20100402, end: 20100525
  4. SINGULAIR [Concomitant]

REACTIONS (4)
  - ANAPHYLACTIC REACTION [None]
  - TONGUE OEDEMA [None]
  - URTICARIA [None]
  - RESPIRATORY DISTRESS [None]
